FAERS Safety Report 12094355 (Version 3)
Quarter: 2020Q2

REPORT INFORMATION
  Report Type: Spontaneous
  Country: CA (occurrence: CA)
  Receive Date: 20160219
  Receipt Date: 20200517
  Transmission Date: 20200713
  Serious: Yes (Hospitalization, Other)
  Sender: FDA-Public Use
  Company Number: CA-AUROBINDO-AUR-APL-2016-01491

PATIENT
  Age: 72 Year
  Sex: Female

DRUGS (9)
  1. CYMBALTA [Concomitant]
     Active Substance: DULOXETINE HYDROCHLORIDE
     Indication: PRODUCT USED FOR UNKNOWN INDICATION
     Dosage: UNK
  2. DULOXETINE DR [Concomitant]
     Active Substance: DULOXETINE
     Indication: DEPRESSION
     Dosage: 30 MG, UNK
     Route: 065
  3. RAMIPRIL. [Concomitant]
     Active Substance: RAMIPRIL
     Indication: HYPERTENSION
     Dosage: 2.5 MG, UNK
     Route: 065
  4. DONEPEZIL 5 MG [Suspect]
     Active Substance: DONEPEZIL
     Indication: PRODUCT USED FOR UNKNOWN INDICATION
     Dosage: 5 MILLIGRAM
     Route: 065
  5. DONEPEZIL 5 MG [Suspect]
     Active Substance: DONEPEZIL
     Dosage: 10 MILLIGRAM
     Route: 065
  6. DULOXETINE DR [Concomitant]
     Active Substance: DULOXETINE
     Indication: FIBROMYALGIA
  7. DULOXETINE DR [Concomitant]
     Active Substance: DULOXETINE
  8. DULOXETINE DR [Concomitant]
     Active Substance: DULOXETINE
  9. RAMIPRIL. [Concomitant]
     Active Substance: RAMIPRIL

REACTIONS (2)
  - Mania [Recovered/Resolved]
  - Psychotic disorder [Recovered/Resolved]
